FAERS Safety Report 26203543 (Version 1)
Quarter: 2025Q4

REPORT INFORMATION
  Report Type: Spontaneous
  Country: CN (occurrence: CN)
  Receive Date: 20251226
  Receipt Date: 20251226
  Transmission Date: 20260118
  Serious: Yes (Other)
  Sender: Kenvue
  Company Number: CN-KENVUE-20251206615

PATIENT

DRUGS (1)
  1. IBUPROFEN [Suspect]
     Active Substance: IBUPROFEN
     Indication: Product used for unknown indication
     Route: 065

REACTIONS (19)
  - Product administered to patient of inappropriate age [Unknown]
  - Hallucination [Unknown]
  - Hyperpyrexia [Unknown]
  - Dyspnoea [Unknown]
  - Neutrophil count decreased [Unknown]
  - Dermatitis allergic [Unknown]
  - White blood cell count decreased [Unknown]
  - Fatigue [Unknown]
  - Adverse event [Unknown]
  - Full blood count decreased [Unknown]
  - Chest discomfort [Unknown]
  - Upper gastrointestinal haemorrhage [Unknown]
  - Acute kidney injury [Unknown]
  - Overdose [Unknown]
  - Hepatic function abnormal [Unknown]
  - Nausea [Unknown]
  - Palpitations [Unknown]
  - Diarrhoea [Unknown]
  - Rash [Unknown]
